FAERS Safety Report 5677582-5 (Version None)
Quarter: 2008Q1

REPORT INFORMATION
  Report Type: 
  Country: None (occurrence: None)
  Receive Date: 20080324
  Receipt Date: 20080312
  Transmission Date: 20080703
  Serious: Yes (Other)
  Sender: FDA-Public Use
  Company Number: FR-AMGEN-US255641

PATIENT
  Age: 45 Year
  Sex: Female
  Weight: 80 kg

DRUGS (7)
  1. ENBREL [Suspect]
     Indication: PSORIATIC ARTHROPATHY
     Route: 058
     Dates: start: 20060501, end: 20071101
  2. APRANAX [Concomitant]
     Dosage: 2 TABLETS PER DAY
     Route: 065
     Dates: start: 20051201
  3. INIPOMP [Concomitant]
     Route: 048
     Dates: start: 20050101
  4. DI-ANTALVIC [Concomitant]
     Dosage: UNKNOWN
     Route: 065
  5. PROZAC [Concomitant]
     Dosage: 40 MG PER DAY
     Route: 065
     Dates: start: 20020101
  6. METHOTREXATE [Concomitant]
     Route: 065
     Dates: start: 20050901
  7. SKENAN [Concomitant]
     Dosage: 30 MG PER DAY
     Route: 065
     Dates: start: 20050901

REACTIONS (2)
  - DRUG INEFFECTIVE [None]
  - RETINAL VEIN THROMBOSIS [None]
